FAERS Safety Report 24164136 (Version 1)
Quarter: 2024Q3

REPORT INFORMATION
  Report Type: Spontaneous
  Country: US (occurrence: US)
  Receive Date: 20240801
  Receipt Date: 20240801
  Transmission Date: 20241017
  Serious: No
  Sender: GE HEALTHCARE
  Company Number: US-GE HEALTHCARE-2024CSU004888

PATIENT
  Age: 18 Year
  Sex: Male

DRUGS (1)
  1. CLARISCAN [Suspect]
     Active Substance: GADOTERATE MEGLUMINE
     Indication: Magnetic resonance imaging abdominal
     Dosage: 13 ML, TOTAL
     Route: 065
     Dates: start: 20240412, end: 20240412

REACTIONS (2)
  - Eye pruritus [Unknown]
  - Swelling of eyelid [Unknown]

NARRATIVE: CASE EVENT DATE: 20240412
